FAERS Safety Report 23139861 (Version 1)
Quarter: 2023Q4

REPORT INFORMATION
  Report Type: Spontaneous
  Country: US (occurrence: None)
  Receive Date: 20231102
  Receipt Date: 20231102
  Transmission Date: 20240110
  Serious: Yes (unspecified)
  Sender: FDA-Public Use
  Company Number: None

PATIENT
  Age: 64 Year
  Sex: Female
  Weight: 68.04 kg

DRUGS (8)
  1. CVS HEALTH LUBRICANT DROPS [Suspect]
     Active Substance: PROPYLENE GLYCOL
     Indication: Dry eye
     Dosage: FREQUENCY : AT BEDTIME;?
     Route: 047
     Dates: start: 20230802, end: 20230803
  2. JARDIANCE [Concomitant]
     Active Substance: EMPAGLIFLOZIN
  3. XARELTO [Concomitant]
     Active Substance: RIVAROXABAN
  4. VENLAFAXINE [Concomitant]
     Active Substance: VENLAFAXINE HYDROCHLORIDE
  5. LOSARTIN [Concomitant]
  6. CALCIUM [Concomitant]
     Active Substance: CALCIUM
  7. VITAMIN D3 [Concomitant]
     Active Substance: CHOLECALCIFEROL
  8. VITAMIN B12 [Concomitant]
     Active Substance: CYANOCOBALAMIN

REACTIONS (3)
  - Eye swelling [None]
  - Swelling of eyelid [None]
  - Erythema of eyelid [None]

NARRATIVE: CASE EVENT DATE: 20230803
